FAERS Safety Report 8274829-6 (Version None)
Quarter: 2012Q2

REPORT INFORMATION
  Report Type: 
  Country: None (occurrence: None)
  Receive Date: 20120411
  Receipt Date: 20120403
  Transmission Date: 20120825
  Serious: Yes (Other)
  Sender: FDA-Public Use
  Company Number: JP-VERTEX PHARMACEUTICALS INC.-AE-2012-004789

PATIENT
  Age: 62 Year
  Sex: Male

DRUGS (8)
  1. ADONA [Concomitant]
  2. TRANSAMINE CAP [Concomitant]
  3. CEFAZOLIN SODIUM [Concomitant]
  4. TELAVIC (TELAPREVIR) [Suspect]
     Indication: HEPATITIS C
     Route: 048
     Dates: start: 20120306, end: 20120324
  5. CEFAZOLIN SODIUM [Concomitant]
  6. RIBAVIRIN [Concomitant]
     Indication: HEPATITIS C
     Route: 048
     Dates: start: 20120306, end: 20120324
  7. ATROPINE [Concomitant]
  8. ATARAX [Concomitant]

REACTIONS (1)
  - DEPRESSION [None]
